FAERS Safety Report 21674121 (Version 3)
Quarter: 2024Q1

REPORT INFORMATION
  Report Type: Spontaneous
  Country: IN (occurrence: IN)
  Receive Date: 20221202
  Receipt Date: 20240105
  Transmission Date: 20240409
  Serious: Yes (Other)
  Sender: FDA-Public Use
  Company Number: IN-PFIZER INC-PV202200032472

PATIENT
  Age: 74 Year
  Sex: Female

DRUGS (5)
  1. PALBOCICLIB [Suspect]
     Active Substance: PALBOCICLIB
     Indication: Breast cancer metastatic
     Dosage: 125 MG
     Route: 048
     Dates: start: 20220719
  2. PALBOCICLIB [Suspect]
     Active Substance: PALBOCICLIB
     Dosage: 125 MG, 1X/DAY
     Route: 048
  3. LETROZOLE [Concomitant]
     Active Substance: LETROZOLE
     Dosage: 2.5 MG, DAILY
  4. DENOSUMAB [Concomitant]
     Active Substance: DENOSUMAB
     Dosage: UNK, DAILY
  5. DENOSUMAB [Concomitant]
     Active Substance: DENOSUMAB
     Dosage: ONCE IN 2 MONTHS
     Route: 058

REACTIONS (6)
  - Type 2 diabetes mellitus [Unknown]
  - Neuropathy peripheral [Unknown]
  - Bone pain [Unknown]
  - Paraesthesia [Unknown]
  - Diabetic neuropathy [Unknown]
  - Product prescribing issue [Unknown]

NARRATIVE: CASE EVENT DATE: 20220701
